FAERS Safety Report 12204058 (Version 1)
Quarter: 2016Q1

REPORT INFORMATION
  Report Type: Spontaneous
  Country: US (occurrence: US)
  Receive Date: 20160323
  Receipt Date: 20160323
  Transmission Date: 20160526
  Serious: No
  Sender: FDA-Public Use
  Company Number: US-PFIZER INC-2016134872

PATIENT
  Age: 71 Year
  Sex: Female

DRUGS (3)
  1. DILANTIN [Suspect]
     Active Substance: PHENYTOIN
     Dosage: UNK
  2. PHENYTOIN. [Suspect]
     Active Substance: PHENYTOIN
     Dosage: UNK
  3. WARFARIN [Suspect]
     Active Substance: WARFARIN
     Dosage: UNK

REACTIONS (1)
  - Drug hypersensitivity [Unknown]
